FAERS Safety Report 6184203-4 (Version None)
Quarter: 2009Q2

REPORT INFORMATION
  Report Type: 
  Country: None (occurrence: None)
  Receive Date: 20090508
  Receipt Date: 20090428
  Transmission Date: 20091009
  Serious: Yes (Hospitalization)
  Sender: FDA-Public Use
  Company Number: FR-PFIZER INC-2006071171

PATIENT
  Age: 57 Year

DRUGS (8)
  1. SUNITINIB MALATE [Suspect]
     Indication: NON-SMALL CELL LUNG CANCER
     Dosage: QD, 28DAYS ON 2WEEKS OFF
     Route: 048
     Dates: start: 20060504, end: 20060618
  2. BI-PROFENID [Suspect]
     Dosage: 150 MG, UNK
     Route: 048
     Dates: start: 20060219
  3. MODURETIC 5-50 [Concomitant]
     Route: 048
     Dates: end: 20060506
  4. SELOKEN [Concomitant]
     Route: 048
  5. TOPALGIC [Concomitant]
     Dosage: 200
     Route: 048
     Dates: start: 20060219
  6. SOPHIDONE [Concomitant]
     Route: 048
     Dates: start: 20060522
  7. OXYNORM [Concomitant]
     Route: 048
     Dates: start: 20060522
  8. HALDOL [Concomitant]
     Dosage: 0.5 MG/ML
     Route: 048
     Dates: start: 20060522

REACTIONS (2)
  - MUCOSAL INFLAMMATION [None]
  - RENAL FAILURE ACUTE [None]
